FAERS Safety Report 9652483 (Version 1)
Quarter: 2013Q4

REPORT INFORMATION
  Report Type: Spontaneous
  Country: JP (occurrence: JP)
  Receive Date: 20131029
  Receipt Date: 20131029
  Transmission Date: 20140711
  Serious: Yes (Other)
  Sender: FDA-Public Use
  Company Number: JP-TEVA-440754USA

PATIENT
  Age: 57 Year
  Sex: Male

DRUGS (1)
  1. BENDAMUSTINE [Suspect]
     Indication: B-CELL LYMPHOMA
     Route: 042

REACTIONS (2)
  - Bone marrow failure [Unknown]
  - Malaise [Unknown]
